FAERS Safety Report 16993660 (Version 3)
Quarter: 2020Q3

REPORT INFORMATION
  Report Type: Report from Study
  Country: DK (occurrence: DK)
  Receive Date: 20191105
  Receipt Date: 20191127
  Transmission Date: 20201104
  Serious: Yes (Hospitalization)
  Sender: FDA-Public Use
  Company Number: DK-PFIZER INC-2019464497

PATIENT
  Age: 67 Year
  Sex: Female
  Weight: 58.3 kg

DRUGS (13)
  1. AVELUMAB [Suspect]
     Active Substance: AVELUMAB
     Indication: NON-SMALL CELL LUNG CANCER
  2. MOMETASON [Concomitant]
     Active Substance: MOMETASONE FUROATE
     Dosage: UNK
  3. ESTRIOL [Concomitant]
     Active Substance: ESTRIOL
     Indication: VULVOVAGINAL DRYNESS
     Dosage: UNK
  4. IBUPROFEN. [Concomitant]
     Active Substance: IBUPROFEN
     Indication: PAIN
     Dosage: UNK
  5. TALAZOPARIB. [Suspect]
     Active Substance: TALAZOPARIB
     Indication: NEOPLASM
     Dosage: 0.75 MG, 1X/DAY
     Route: 048
     Dates: start: 20190227, end: 20191025
  6. AVELUMAB [Suspect]
     Active Substance: AVELUMAB
     Indication: NEOPLASM
     Dosage: 800 MG, EVERY 2 WEEKS
     Route: 041
     Dates: start: 20190227
  7. ESCITALOPRAM [Concomitant]
     Active Substance: ESCITALOPRAM OXALATE
     Indication: DEPRESSION
     Dosage: UNK
  8. EMEND [Concomitant]
     Active Substance: APREPITANT
     Indication: PROPHYLAXIS
     Dosage: UNK
  9. PARACETAMOL [Concomitant]
     Active Substance: ACETAMINOPHEN
     Indication: PAIN
     Dosage: UNK
  10. TALAZOPARIB. [Suspect]
     Active Substance: TALAZOPARIB
     Indication: NON-SMALL CELL LUNG CANCER
  11. ATORVASTATIN [Concomitant]
     Active Substance: ATORVASTATIN
     Indication: HYPERLIPIDAEMIA
     Dosage: UNK
  12. CLOPIDOGREL [Concomitant]
     Active Substance: CLOPIDOGREL BISULFATE
     Indication: ANTICOAGULANT THERAPY
     Dosage: UNK
  13. MACROGOL [Concomitant]
     Active Substance: POLYETHYLENE GLYCOLS
     Indication: PROPHYLAXIS
     Dosage: UNK

REACTIONS (1)
  - Pneumonia [Recovered/Resolved]

NARRATIVE: CASE EVENT DATE: 20191025
